FAERS Safety Report 25148787 (Version 1)
Quarter: 2025Q2

REPORT INFORMATION
  Report Type: Spontaneous
  Country: US (occurrence: US)
  Receive Date: 20250402
  Receipt Date: 20250402
  Transmission Date: 20250716
  Serious: Yes (Other)
  Sender: ALEMBIC
  Company Number: US-ALEMBIC PHARMACUETICALS LIMITED-2025SCAL000252

PATIENT

DRUGS (1)
  1. TESTOSTERONE [Suspect]
     Active Substance: TESTOSTERONE
     Indication: Product used for unknown indication
     Route: 065

REACTIONS (7)
  - Electrocardiogram ST segment depression [Unknown]
  - Electrocardiogram T wave peaked [Unknown]
  - Ventricular hypokinesia [Unknown]
  - Coronary artery occlusion [Recovering/Resolving]
  - Chest pain [Recovering/Resolving]
  - Coronary artery thrombosis [Unknown]
  - Wellens^ syndrome [Unknown]
